FAERS Safety Report 13129383 (Version 1)
Quarter: 2017Q1

REPORT INFORMATION
  Report Type: Spontaneous
  Country: US (occurrence: US)
  Receive Date: 20170118
  Receipt Date: 20170118
  Transmission Date: 20170428
  Serious: No
  Sender: FDA-Public Use
  Company Number: None

PATIENT
  Age: 33 Year
  Sex: Male
  Weight: 57 kg

DRUGS (1)
  1. ULTRAVIST [Suspect]
     Active Substance: IOPROMIDE
     Indication: NASOPHARYNGEAL CANCER
     Route: 042
     Dates: start: 20160801

REACTIONS (5)
  - Cough [None]
  - Contrast media reaction [None]
  - Rhinorrhoea [None]
  - Sneezing [None]
  - Sensation of foreign body [None]

NARRATIVE: CASE EVENT DATE: 20160801
